FAERS Safety Report 17196397 (Version 1)
Quarter: 2019Q4

REPORT INFORMATION
  Report Type: Spontaneous
  Country: FR (occurrence: FR)
  Receive Date: 20191224
  Receipt Date: 20191224
  Transmission Date: 20200122
  Serious: Yes (Death, Hospitalization, Other)
  Sender: FDA-Public Use
  Company Number: FR-CELGENEUS-FRA-20191208079

PATIENT
  Sex: Female

DRUGS (7)
  1. DOXORUBICIN [Concomitant]
     Active Substance: DOXORUBICIN
     Indication: PLASMA CELL MYELOMA
     Route: 065
     Dates: start: 20190418, end: 20190513
  2. DEXAMETHASONE. [Concomitant]
     Active Substance: DEXAMETHASONE
     Indication: PLASMA CELL MYELOMA
     Route: 065
     Dates: start: 20190418, end: 20190513
  3. THALIDOMIDE [Suspect]
     Active Substance: THALIDOMIDE
     Indication: PLASMA CELL MYELOMA
     Route: 048
     Dates: start: 20190418, end: 20190513
  4. VELCADE [Suspect]
     Active Substance: BORTEZOMIB
     Indication: PLASMA CELL MYELOMA
     Route: 065
     Dates: start: 20190418, end: 20190513
  5. IXAZOMIB [Suspect]
     Active Substance: IXAZOMIB
     Indication: PLASMA CELL MYELOMA
     Route: 065
     Dates: start: 20181221
  6. DARZALEX [Concomitant]
     Active Substance: DARATUMUMAB
     Indication: PRODUCT USED FOR UNKNOWN INDICATION
     Route: 065
     Dates: end: 20190517
  7. CARFILZOMIB [Concomitant]
     Active Substance: CARFILZOMIB
     Indication: PRODUCT USED FOR UNKNOWN INDICATION
     Dosage: UNKNOWN
     Route: 065
     Dates: end: 20190517

REACTIONS (23)
  - Ascites [Unknown]
  - Epistaxis [Recovering/Resolving]
  - Anaemia [Recovering/Resolving]
  - Malnutrition [Unknown]
  - Decubitus ulcer [Unknown]
  - Joint ankylosis [Unknown]
  - Loss of personal independence in daily activities [Unknown]
  - Pruritus [Recovering/Resolving]
  - Sleep disorder [Unknown]
  - Dyspepsia [Unknown]
  - Body dysmorphic disorder [Unknown]
  - General physical health deterioration [Unknown]
  - Cholestasis [Unknown]
  - Pain [Unknown]
  - Constipation [Unknown]
  - Anxiety [Unknown]
  - Hepatic cirrhosis [Unknown]
  - Jaundice [Recovering/Resolving]
  - Hepatocellular injury [Unknown]
  - Disease progression [Unknown]
  - Death [Fatal]
  - Thrombocytopenia [Recovering/Resolving]
  - Diarrhoea [Unknown]

NARRATIVE: CASE EVENT DATE: 20181221
